FAERS Safety Report 19738073 (Version 2)
Quarter: 2021Q3

REPORT INFORMATION
  Report Type: Spontaneous
  Country: SG (occurrence: SG)
  Receive Date: 20210824
  Receipt Date: 20210909
  Transmission Date: 20211014
  Serious: Yes (Other)
  Sender: FDA-Public Use
  Company Number: SG-VIIV HEALTHCARE LIMITED-SG2021APC174352

PATIENT

DRUGS (2)
  1. ZIAGEN [Suspect]
     Active Substance: ABACAVIR SULFATE
     Indication: PRODUCT USED FOR UNKNOWN INDICATION
     Dosage: UNK, TABLET, 1X60^S, 300 MG
  2. COMBIVIR [Suspect]
     Active Substance: LAMIVUDINE\ZIDOVUDINE
     Indication: PRODUCT USED FOR UNKNOWN INDICATION
     Dosage: UNK, TABLET, 1X60^S, 150/300 MG

REACTIONS (4)
  - Product packaging confusion [Unknown]
  - Product complaint [Unknown]
  - Product dispensing error [Unknown]
  - Wrong product administered [Unknown]
